FAERS Safety Report 12907141 (Version 2)
Quarter: 2016Q4

REPORT INFORMATION
  Report Type: Spontaneous
  Country: US (occurrence: US)
  Receive Date: 20161103
  Receipt Date: 20161117
  Transmission Date: 20170207
  Serious: No
  Sender: FDA-Public Use
  Company Number: US-009507513-1611USA000918

PATIENT
  Age: 40 Year
  Sex: Female
  Weight: 74.83 kg

DRUGS (2)
  1. FOLLISTIM AQ [Suspect]
     Active Substance: FOLLITROPIN
     Dosage: UNK
     Dates: start: 20161013
  2. FOLLITROPIN BETA [Suspect]
     Active Substance: FOLLITROPIN
     Indication: PRODUCT USED FOR UNKNOWN INDICATION
     Dosage: UNK
     Dates: start: 20161013

REACTIONS (3)
  - Injection site bruising [Unknown]
  - Drug dose omission [Unknown]
  - Device defective [Unknown]

NARRATIVE: CASE EVENT DATE: 20161019
